FAERS Safety Report 8504456-4 (Version None)
Quarter: 2012Q3

REPORT INFORMATION
  Report Type: 
  Country: None (occurrence: None)
  Receive Date: 20120711
  Receipt Date: 20120629
  Transmission Date: 20120928
  Serious: Yes (Hospitalization)
  Sender: FDA-Public Use
  Company Number: DE-ELI_LILLY_AND_COMPANY-DE201206009473

PATIENT
  Age: 60 Year
  Sex: Female

DRUGS (2)
  1. BYETTA [Suspect]
     Indication: TYPE 2 DIABETES MELLITUS
     Dosage: 10 UG, EACH MORNING
     Dates: start: 20110421, end: 20120625
  2. METFORMIN HCL [Concomitant]
     Dosage: 1000 MG, UNK
     Dates: start: 20110210, end: 20120627

REACTIONS (3)
  - SKIN BURNING SENSATION [None]
  - DIZZINESS [None]
  - FLUSHING [None]
